FAERS Safety Report 6743813-3 (Version None)
Quarter: 2010Q2

REPORT INFORMATION
  Report Type: 
  Country: None (occurrence: None)
  Receive Date: 20100527
  Receipt Date: 20100419
  Transmission Date: 20101027
  Serious: No
  Sender: FDA-Public Use
  Company Number: US-KINGPHARMUSA00001-K201000465

PATIENT
  Sex: Female
  Weight: 64.853 kg

DRUGS (7)
  1. FLECTOR [Suspect]
     Indication: NEURALGIA
     Dosage: 1 PATCH, QD
     Route: 061
     Dates: start: 20100401
  2. FLECTOR [Suspect]
     Indication: SCIATICA
  3. LISINOPRIL [Suspect]
     Indication: HYPERTENSION
     Dosage: UNK
     Dates: start: 20100416
  4. SYNTHROID [Concomitant]
     Dosage: UNK
  5. CALCIFEROL [Concomitant]
     Indication: SUPPLEMENTATION THERAPY
     Dosage: UNK
  6. CORTICOSTEROID NOS [Concomitant]
     Dosage: 3 DOSES
  7. NSAID'S [Concomitant]
     Dosage: UNK

REACTIONS (1)
  - DIZZINESS [None]
